FAERS Safety Report 26166757 (Version 1)
Quarter: 2025Q4

REPORT INFORMATION
  Report Type: Report from Study
  Country: US (occurrence: US)
  Receive Date: 20251217
  Receipt Date: 20251217
  Transmission Date: 20260118
  Serious: No
  Sender: ACADIA PHARMACEUTICALS
  Company Number: US-ACADIA PHARMACEUTICALS INC.-ACA-2025-PIM-013203

PATIENT
  Sex: Male

DRUGS (1)
  1. NUPLAZID [Suspect]
     Active Substance: PIMAVANSERIN TARTRATE
     Indication: Parkinson^s disease psychosis
     Dosage: 34 MILLIGRAM, QD (1 CAPSULE NIGHTLY ON SAT, SUN, TUE AND THUR/TAKE 2 CAPSULES NIGHTLY ON MON, WED AN
     Route: 048
     Dates: start: 202307

REACTIONS (3)
  - Ill-defined disorder [Unknown]
  - Inappropriate schedule of product administration [Unknown]
  - Overdose [Unknown]
